FAERS Safety Report 11194465 (Version 3)
Quarter: 2015Q3

REPORT INFORMATION
  Report Type: Spontaneous
  Country: DE (occurrence: DE)
  Receive Date: 20150616
  Receipt Date: 20150717
  Transmission Date: 20151125
  Serious: Yes (Hospitalization, Disabling)
  Sender: FDA-Public Use
  Company Number: PHHY2015DE070794

PATIENT
  Sex: Female

DRUGS (1)
  1. SANDIMMUN [Suspect]
     Active Substance: CYCLOSPORINE
     Indication: IMMUNOSUPPRESSION
     Dosage: 2MG/KG BODY WEIGHT, TWICE DAILY
     Route: 048
     Dates: start: 20140707

REACTIONS (3)
  - Sensorimotor disorder [Recovering/Resolving]
  - Hemiparesis [Recovering/Resolving]
  - Paraplegia [Recovering/Resolving]
